FAERS Safety Report 17959171 (Version 10)
Quarter: 2022Q1

REPORT INFORMATION
  Report Type: Spontaneous
  Country: BR (occurrence: BR)
  Receive Date: 20200629
  Receipt Date: 20220302
  Transmission Date: 20220423
  Serious: Yes (Hospitalization, Other)
  Sender: FDA-Public Use
  Company Number: BR-GLAXOSMITHKLINE-BR2019AMR215718

PATIENT
  Age: 30 Year
  Sex: Female
  Weight: 64 kg

DRUGS (4)
  1. BENLYSTA [Suspect]
     Active Substance: BELIMUMAB
     Indication: Systemic lupus erythematosus
     Dosage: 640 MG
     Dates: start: 20191031
  2. BENLYSTA [Suspect]
     Active Substance: BELIMUMAB
     Indication: Systemic lupus erythematosus
     Dosage: 800 MG, WEEKLY
     Dates: start: 202109
  3. METHOTREXATE [Suspect]
     Active Substance: METHOTREXATE
     Indication: Arthritis
     Dosage: UNK
  4. METHOTREXATE [Suspect]
     Active Substance: METHOTREXATE
     Indication: Infection

REACTIONS (41)
  - Urinary retention [Unknown]
  - Dyschezia [Unknown]
  - Constipation [Unknown]
  - Urinary tract infection [Recovered/Resolved]
  - Bone marrow oedema [Unknown]
  - Bacterial infection [Unknown]
  - Pathogen resistance [Unknown]
  - Fungal infection [Unknown]
  - Respiratory tract infection [Recovered/Resolved]
  - Systemic lupus erythematosus [Unknown]
  - COVID-19 [Not Recovered/Not Resolved]
  - Cerebrovascular accident [Unknown]
  - Surgery [Unknown]
  - Urinary tract infection [Unknown]
  - Nephritis [Unknown]
  - Epilepsy [Unknown]
  - Pharyngitis [Unknown]
  - Sinusitis [Unknown]
  - Arthralgia [Unknown]
  - Symptom recurrence [Unknown]
  - Adverse event [Unknown]
  - Abdominal pain [Unknown]
  - Bladder pain [Unknown]
  - Computerised tomogram abnormal [Unknown]
  - Weight increased [Unknown]
  - Oropharyngeal pain [Not Recovered/Not Resolved]
  - Headache [Unknown]
  - Nausea [Unknown]
  - Arthritis [Unknown]
  - Infection [Unknown]
  - Inflammation [Unknown]
  - Condition aggravated [Unknown]
  - Joint swelling [Unknown]
  - White blood cell count increased [Unknown]
  - Condition aggravated [Unknown]
  - Tachycardia [Unknown]
  - Social problem [Unknown]
  - Inappropriate schedule of product administration [Unknown]
  - Product availability issue [Unknown]
  - Circumstance or information capable of leading to medication error [Unknown]
  - Product use in unapproved indication [Unknown]

NARRATIVE: CASE EVENT DATE: 20210510
